FAERS Safety Report 15938490 (Version 1)
Quarter: 2019Q1

REPORT INFORMATION
  Report Type: Spontaneous
  Country: US (occurrence: US)
  Receive Date: 20190208
  Receipt Date: 20190208
  Transmission Date: 20190417
  Serious: No
  Sender: FDA-Public Use
  Company Number: US-ROCHE-2238591

PATIENT
  Sex: Male

DRUGS (1)
  1. XOLAIR [Suspect]
     Active Substance: OMALIZUMAB
     Indication: IDIOPATHIC URTICARIA
     Dosage: INJECT 300MG SC EVERY 4 WEEKS, 150 MG VIAL
     Route: 058

REACTIONS (2)
  - Drug ineffective [Unknown]
  - Unevaluable event [Not Recovered/Not Resolved]
